FAERS Safety Report 21389195 (Version 4)
Quarter: 2022Q4

REPORT INFORMATION
  Report Type: Spontaneous
  Country: FR (occurrence: FR)
  Receive Date: 20220929
  Receipt Date: 20221111
  Transmission Date: 20230113
  Serious: Yes (Hospitalization)
  Sender: FDA-Public Use
  Company Number: None

PATIENT
  Age: 53 Year
  Sex: Male
  Weight: 77 kg

DRUGS (8)
  1. ATORVASTATIN [Suspect]
     Active Substance: ATORVASTATIN
     Indication: Myocardial ischaemia
     Dosage: UNIT DOSE : 80 MG, FREQUENCY TIME : 1 DAY, THERAPY END DATE : NASK
     Route: 065
     Dates: start: 20220625
  2. BISOPROLOL FUMARATE [Suspect]
     Active Substance: BISOPROLOL FUMARATE
     Indication: Myocardial ischaemia
     Dosage: UNIT DOSE : 1.25 MG, FREQUENCY TIME : 1 DAY,   DURATION : 10 DAYS
     Route: 065
     Dates: start: 20220625, end: 20220704
  3. PANTOPRAZOLE [Suspect]
     Active Substance: PANTOPRAZOLE
     Indication: Gastrooesophageal reflux disease
     Dosage: UNIT DOSE : 20 MG, FREQUENCY TIME : 1 DAY ,  DURATION : 10 DAYS
     Route: 065
     Dates: start: 20220625, end: 20220704
  4. RAMIPRIL [Suspect]
     Active Substance: RAMIPRIL
     Indication: Myocardial ischaemia
     Dosage: UNIT DOSE : 2.5MG , FREQUENCY TIME : 1 DAY, DURATION : 10 DAYS
     Route: 065
     Dates: start: 20220625, end: 20220704
  5. OXAZEPAM [Suspect]
     Active Substance: OXAZEPAM
     Indication: Prophylaxis against alcoholic withdrawal syndrome
     Dosage: 10 MILLIGRAM DAILY; 0-0-0-1, DURATION : 10 DAYS
     Route: 065
     Dates: start: 20220625, end: 20220704
  6. KARDEGIC [Suspect]
     Active Substance: ASPIRIN DL-LYSINE
     Indication: Myocardial ischaemia
     Dosage: STRENGTH : 75 MG,  IN SACHET-DOSE, UNIT DOSE : 75 MG, FREQUENCY TIME : 1 DAY, THERAPY END DATE : NAS
     Route: 065
     Dates: start: 20220625
  7. CYANOCOBALAMIN\PYRIDOXINE HYDROCHLORIDE\THIAMINE [Suspect]
     Active Substance: CYANOCOBALAMIN\PYRIDOXINE HYDROCHLORIDE\THIAMINE
     Indication: Prophylaxis against alcoholic withdrawal syndrome
     Dosage: 2 DOSAGE FORMS DAILY; 2-0-0, FREQUENCY TIME : 1 DAY, DURATION : 10 MG
     Route: 065
     Dates: start: 20220625, end: 20220704
  8. TICAGRELOR [Suspect]
     Active Substance: TICAGRELOR
     Indication: Myocardial ischaemia
     Dosage: 180 MILLIGRAM DAILY; 1-0-1 , STRENGTH  : 90 MG, UNIT DOSE : 90 MG,   DURATION : 10 DAYS
     Route: 065
     Dates: start: 20220625, end: 20220705

REACTIONS (1)
  - Urticaria [Recovering/Resolving]

NARRATIVE: CASE EVENT DATE: 20220627
